FAERS Safety Report 11641516 (Version 1)
Quarter: 2015Q4

REPORT INFORMATION
  Report Type: Report from Study
  Country: US (occurrence: US)
  Receive Date: 20151019
  Receipt Date: 20151019
  Transmission Date: 20160304
  Serious: Yes (Other)
  Sender: FDA-Public Use
  Company Number: US-BAYER-2015-439294

PATIENT
  Age: 81 Year
  Sex: Male

DRUGS (1)
  1. STIVARGA [Suspect]
     Active Substance: REGORAFENIB
     Indication: COLON CANCER
     Dosage: 160 MG, QD
     Route: 048
     Dates: start: 201510, end: 20151007

REACTIONS (5)
  - Neck pain [None]
  - Pain in extremity [None]
  - Dysphonia [None]
  - Bedridden [None]
  - Muscular weakness [None]

NARRATIVE: CASE EVENT DATE: 201510
